FAERS Safety Report 5957808-0 (Version None)
Quarter: 2008Q4

REPORT INFORMATION
  Report Type: 
  Country: None (occurrence: None)
  Receive Date: 20081117
  Receipt Date: 20081103
  Transmission Date: 20090506
  Serious: Yes (Death, Hospitalization)
  Sender: FDA-Public Use
  Company Number: JPI-P-005282

PATIENT
  Age: 81 Year
  Sex: Female

DRUGS (3)
  1. XYREM [Suspect]
     Indication: DRUG USE FOR UNKNOWN INDICATION
     Dosage: 6 GM (3 GM, DICONTINUED IN FEB OR MAR-2008), ORAL 7.5 GM (3.75 GM, 2 IN D) ORAL
     Route: 048
     Dates: start: 20080301, end: 20080101
  2. XYREM [Suspect]
     Indication: DRUG USE FOR UNKNOWN INDICATION
     Dosage: 6 GM (3 GM, DICONTINUED IN FEB OR MAR-2008), ORAL 7.5 GM (3.75 GM, 2 IN D) ORAL
     Route: 048
     Dates: start: 20050101, end: 20080301
  3. XYREM [Suspect]
     Indication: DRUG USE FOR UNKNOWN INDICATION
     Dosage: 6 GM (3 GM, DICONTINUED IN FEB OR MAR-2008), ORAL 7.5 GM (3.75 GM, 2 IN D) ORAL
     Route: 048
     Dates: start: 20040812

REACTIONS (3)
  - CARDIAC OPERATION [None]
  - LYMPHOMA [None]
  - RECURRENT CANCER [None]
